FAERS Safety Report 12566431 (Version 1)
Quarter: 2016Q3

REPORT INFORMATION
  Report Type: Spontaneous
  Country: US (occurrence: US)
  Receive Date: 20160718
  Receipt Date: 20160718
  Transmission Date: 20161109
  Serious: Yes (Other)
  Sender: FDA-Public Use
  Company Number: US-SA-2016SA130179

PATIENT
  Sex: Female

DRUGS (5)
  1. AUBAGIO [Suspect]
     Active Substance: TERIFLUNOMIDE
     Indication: MULTIPLE SCLEROSIS
     Route: 048
     Dates: start: 20150408
  2. VITAMIN D [Concomitant]
     Active Substance: CHOLECALCIFEROL
  3. OXYBUTYNIN [Concomitant]
     Active Substance: OXYBUTYNIN
  4. AZO [Concomitant]
     Active Substance: PHENAZOPYRIDINE HYDROCHLORIDE
  5. CRANBERRY EXTRACT [Concomitant]
     Active Substance: CRANBERRY JUICE

REACTIONS (1)
  - Ankle fracture [Unknown]
